FAERS Safety Report 6502092-2 (Version None)
Quarter: 2009Q4

REPORT INFORMATION
  Report Type: 
  Country: None (occurrence: None)
  Receive Date: 20091214
  Receipt Date: 20091204
  Transmission Date: 20100525
  Serious: Yes (Hospitalization, Other)
  Sender: FDA-Public Use
  Company Number: 2009SP039651

PATIENT
  Age: 83 Year
  Sex: Female

DRUGS (1)
  1. TEMODAL [Suspect]
     Indication: GLIOBLASTOMA MULTIFORME
     Dates: start: 20090701, end: 20090101

REACTIONS (3)
  - DEMENTIA [None]
  - HYPOKALAEMIA [None]
  - PYREXIA [None]
